FAERS Safety Report 22868593 (Version 5)
Quarter: 2023Q4

REPORT INFORMATION
  Report Type: Report from Study
  Country: CN (occurrence: None)
  Receive Date: 20230825
  Receipt Date: 20231004
  Transmission Date: 20240110
  Serious: Yes (Hospitalization)
  Sender: FDA-Public Use
  Company Number: CN-Eisai Medical Research-EC-2023-147217

PATIENT
  Age: 39 Year
  Sex: Male
  Weight: 60 kg

DRUGS (7)
  1. LENVATINIB [Suspect]
     Active Substance: LENVATINIB
     Indication: Clear cell renal cell carcinoma
     Route: 048
     Dates: start: 20230621, end: 20230816
  2. QUAVONLIMAB [Suspect]
     Active Substance: QUAVONLIMAB
     Indication: Clear cell renal cell carcinoma
     Dosage: MK-1308 25MG + PEMBROLIZUMAB 400MG
     Route: 042
     Dates: start: 20230621, end: 20230802
  3. INSULIN ASPART\INSULIN DEGLUDEC [Concomitant]
     Active Substance: INSULIN ASPART\INSULIN DEGLUDEC
     Dates: start: 201508
  4. INSULIN ASPART [Concomitant]
     Active Substance: INSULIN ASPART
     Dates: start: 201508
  5. INSULIN LISPRO;INSULIN LISPRO PROTAMINE SUSPENSION [Concomitant]
     Dates: start: 202307
  6. DAPAGLIFLOZIN [Concomitant]
     Active Substance: DAPAGLIFLOZIN
     Dates: start: 202307
  7. PEMBROLIZUMAB [Suspect]
     Active Substance: PEMBROLIZUMAB

REACTIONS (1)
  - Bradycardia [Not Recovered/Not Resolved]

NARRATIVE: CASE EVENT DATE: 20230815
